FAERS Safety Report 7438961-9 (Version None)
Quarter: 2011Q2

REPORT INFORMATION
  Report Type: 
  Country: None (occurrence: None)
  Receive Date: 20110426
  Receipt Date: 20110412
  Transmission Date: 20111010
  Serious: Yes (Hospitalization)
  Sender: FDA-Public Use
  Company Number: US-MYLANLABS-2011S1007753

PATIENT
  Age: 46 Year
  Sex: Male

DRUGS (2)
  1. WARFARIN [Suspect]
     Route: 065
  2. SILDENAFIL CITRATE [Suspect]
     Indication: PARAESTHESIA
     Dosage: PRIOR TO SEXUAL INTERCOURSE
     Route: 065

REACTIONS (3)
  - FRACTURE OF PENIS [None]
  - INTERNATIONAL NORMALISED RATIO INCREASED [None]
  - ECCHYMOSIS [None]
